FAERS Safety Report 15952357 (Version 2)
Quarter: 2019Q1

REPORT INFORMATION
  Report Type: Spontaneous
  Country: US (occurrence: US)
  Receive Date: 20190211
  Receipt Date: 20190221
  Transmission Date: 20190417
  Serious: Yes (Other)
  Sender: FDA-Public Use
  Company Number: US-SAOL THERAPEUTICS-2019SAO00048

PATIENT
  Age: 38 Year
  Sex: Female

DRUGS (5)
  1. WINRHO SDF [Suspect]
     Active Substance: HUMAN RHO(D) IMMUNE GLOBULIN
     Dosage: 1000 ?G (5000 IU) ONCE
     Route: 042
     Dates: start: 201901, end: 201901
  2. WINRHO SDF [Suspect]
     Active Substance: HUMAN RHO(D) IMMUNE GLOBULIN
     Indication: IMMUNE THROMBOCYTOPENIC PURPURA
     Dosage: 1000 ?G (5000 IU) ONCE
     Route: 042
     Dates: start: 20181214, end: 20181214
  3. ALEVE [Concomitant]
     Active Substance: NAPROXEN SODIUM
  4. AVIANE [Concomitant]
     Active Substance: ETHINYL ESTRADIOL\LEVONORGESTREL
  5. SERTRALINE [Concomitant]
     Active Substance: SERTRALINE HYDROCHLORIDE

REACTIONS (6)
  - Pallor [Recovered/Resolved]
  - Chills [Recovered/Resolved]
  - Haemoglobin decreased [Recovered/Resolved]
  - Body temperature increased [Recovered/Resolved]
  - Hypoaesthesia [Recovered/Resolved]
  - Headache [Recovered/Resolved]

NARRATIVE: CASE EVENT DATE: 20181214
